FAERS Safety Report 10028898 (Version 2)
Quarter: 2014Q1

REPORT INFORMATION
  Report Type: Report from Study
  Country: US (occurrence: US)
  Receive Date: 20140321
  Receipt Date: 20140328
  Transmission Date: 20141002
  Serious: Yes (Hospitalization)
  Sender: FDA-Public Use
  Company Number: US-JNJFOC-20140310754

PATIENT
  Age: 13 Year
  Sex: Male
  Weight: 64.5 kg

DRUGS (19)
  1. REMICADE [Suspect]
     Indication: INFLAMMATORY BOWEL DISEASE
     Route: 042
     Dates: start: 20050807, end: 20100507
  2. FOLIC ACID [Concomitant]
     Route: 065
  3. COENZYME Q10 [Concomitant]
     Route: 065
  4. SELENIUM [Concomitant]
     Route: 065
  5. RIBOFLAVIN [Concomitant]
     Route: 065
  6. VITAMINE E [Concomitant]
     Route: 065
  7. VITAMIN C [Concomitant]
     Route: 065
  8. LIPOIC ACID [Concomitant]
     Route: 065
  9. NEXIUM [Concomitant]
     Route: 065
  10. 5-ASA [Concomitant]
     Indication: INFLAMMATORY BOWEL DISEASE
     Route: 048
  11. INTRAVENOUS IMMUNOGLOBULIN [Concomitant]
     Route: 065
     Dates: start: 20080808
  12. MIRALAX [Concomitant]
     Route: 065
  13. TUMS [Concomitant]
     Route: 065
  14. NEURONTIN [Concomitant]
     Route: 065
  15. MULTIVITAMINS [Concomitant]
     Route: 065
  16. MAGNESIUM CITRATE [Concomitant]
     Route: 065
  17. ATENOLOL [Concomitant]
     Route: 065
  18. NALTREXONE [Concomitant]
     Route: 065
  19. XOPENEX [Concomitant]
     Route: 065

REACTIONS (1)
  - Constipation [Recovered/Resolved]
